FAERS Safety Report 6521992-0 (Version None)
Quarter: 2009Q4

REPORT INFORMATION
  Report Type: 
  Country: None (occurrence: None)
  Receive Date: 20091214
  Receipt Date: 20090721
  Transmission Date: 20100525
  Serious: Yes (Hospitalization)
  Sender: FDA-Public Use
  Company Number: 645489

PATIENT
  Age: 41 Year
  Sex: Female

DRUGS (12)
  1. PEGASYS [Suspect]
     Indication: HEPATITIS C
     Dosage: 180 UG 1 PER WEEK SUBCUTANEOUS
     Route: 058
     Dates: start: 20090107
  2. RIBAVIRIN [Suspect]
     Indication: HEPATITIS C
     Dosage: 1400 MG DAILY ORAL
     Route: 048
     Dates: start: 20090107
  3. SPIRONOLACTONE [Concomitant]
  4. ZETIA [Concomitant]
  5. BUPROPION HCL [Concomitant]
  6. AMBIEN CR [Concomitant]
  7. WELLBUTRIN XL [Concomitant]
  8. EFFEXOR [Concomitant]
  9. ZANTAC [Concomitant]
  10. SEROQUEL [Concomitant]
  11. ZOCOR [Concomitant]
  12. NOVOLOG [Concomitant]

REACTIONS (2)
  - FULL BLOOD COUNT DECREASED [None]
  - HAEMOGLOBIN DECREASED [None]
